FAERS Safety Report 6374131-3 (Version None)
Quarter: 2009Q3

REPORT INFORMATION
  Report Type: 
  Country: None (occurrence: None)
  Receive Date: 20090922
  Receipt Date: 20090922
  Transmission Date: 20100115
  Serious: No
  Sender: FDA-Public Use
  Company Number: None

PATIENT
  Age: 64 Year
  Sex: Female
  Weight: 133.8111 kg

DRUGS (1)
  1. VESICARE [Suspect]
     Indication: URINARY INCONTINENCE
     Dosage: 1 TAB DAILY
     Dates: start: 20090820, end: 20090909

REACTIONS (1)
  - VISION BLURRED [None]
